FAERS Safety Report 11552738 (Version 1)
Quarter: 2015Q3

REPORT INFORMATION
  Report Type: Report from Study
  Country: DE (occurrence: DE)
  Receive Date: 20150925
  Receipt Date: 20150925
  Transmission Date: 20151125
  Serious: Yes (Hospitalization, Other)
  Sender: FDA-Public Use
  Company Number: DE-BIOGENIDEC-2015BI127584

PATIENT
  Age: 70 Year
  Sex: Male

DRUGS (1)
  1. AVONEX [Suspect]
     Active Substance: INTERFERON BETA-1A
     Indication: MULTIPLE SCLEROSIS
     Route: 030
     Dates: start: 20080213

REACTIONS (2)
  - Metastases to liver [Not Recovered/Not Resolved]
  - Colon cancer [Recovered/Resolved with Sequelae]

NARRATIVE: CASE EVENT DATE: 2015
